FAERS Safety Report 6657019-X (Version None)
Quarter: 2010Q1

REPORT INFORMATION
  Report Type: 
  Country: None (occurrence: None)
  Receive Date: 20100329
  Receipt Date: 20100329
  Transmission Date: 20100710
  Serious: Yes (Hospitalization)
  Sender: FDA-Public Use
  Company Number: None

PATIENT
  Sex: Female
  Weight: 55.5 kg

DRUGS (6)
  1. IRINOTECAN HCL [Suspect]
     Indication: PANCREATIC CARCINOMA
     Dosage: IRINOTECAN 140MG Q 2 WEEKS IV
     Route: 042
     Dates: start: 20100311
  2. OXALIPLATIN [Suspect]
     Indication: PANCREATIC CARCINOMA
     Dosage: OXALIPLATIN 90MG Q 2 WEEKS IV
     Route: 042
     Dates: start: 20100311
  3. CETUXIMAB [Suspect]
     Dosage: CETUXIMAB 460MG
  4. IMODIUM [Concomitant]
  5. LEMCTIL/ATROPINE [Concomitant]
  6. METAMUCIL-2 [Concomitant]

REACTIONS (2)
  - DEHYDRATION [None]
  - DIARRHOEA [None]
